FAERS Safety Report 17166295 (Version 1)
Quarter: 2019Q4

REPORT INFORMATION
  Report Type: Spontaneous
  Country: US (occurrence: US)
  Receive Date: 20191217
  Receipt Date: 20191217
  Transmission Date: 20200122
  Serious: Yes (Other)
  Sender: FDA-Public Use
  Company Number: None

PATIENT
  Age: 19 Year
  Sex: Female
  Weight: 50 kg

DRUGS (4)
  1. FOSAPREPITANT [Suspect]
     Active Substance: FOSAPREPITANT
     Indication: PROPHYLAXIS OF NAUSEA AND VOMITING
     Route: 042
     Dates: start: 20191012
  2. ACYCLOVIR 800 MG PO [Concomitant]
  3. ONDANSETRON 8 MG IV [Concomitant]
  4. URSODIOL 300 MG PO [Concomitant]

REACTIONS (4)
  - Flushing [None]
  - Catheter site pain [None]
  - Chest discomfort [None]
  - Cough [None]
